FAERS Safety Report 25697831 (Version 1)
Quarter: 2025Q3

REPORT INFORMATION
  Report Type: Spontaneous
  Country: US (occurrence: US)
  Receive Date: 20250819
  Receipt Date: 20250819
  Transmission Date: 20251021
  Serious: No
  Sender: TAKEDA
  Company Number: US-TAKEDA-2025TUS072790

PATIENT
  Sex: Male

DRUGS (4)
  1. GATTEX [Suspect]
     Active Substance: TEDUGLUTIDE\WATER
     Indication: Short-bowel syndrome
  2. GATTEX [Suspect]
     Active Substance: TEDUGLUTIDE\WATER
     Indication: Gastrointestinal stoma complication
  3. GATTEX [Suspect]
     Active Substance: TEDUGLUTIDE\WATER
  4. GATTEX [Suspect]
     Active Substance: TEDUGLUTIDE\WATER

REACTIONS (6)
  - Weight increased [Unknown]
  - Hot flush [Unknown]
  - Stoma site oedema [Unknown]
  - Dehydration [Unknown]
  - Oedema [Unknown]
  - Nausea [Unknown]
